FAERS Safety Report 7169867-0 (Version None)
Quarter: 2010Q4

REPORT INFORMATION
  Report Type: 
  Country: None (occurrence: None)
  Receive Date: 20101217
  Receipt Date: 20101213
  Transmission Date: 20110411
  Serious: Yes (Other)
  Sender: FDA-Public Use
  Company Number: PHHO2010CN11991

PATIENT
  Sex: Male
  Weight: 54 kg

DRUGS (2)
  1. LDT600 LDT+TAB [Suspect]
     Indication: HEPATITIS B
     Dosage: 600 MG
     Route: 048
     Dates: start: 20090306, end: 20091120
  2. LDT600 LDT+TAB [Suspect]
     Dosage: UNK
     Route: 048
     Dates: end: 20100310

REACTIONS (4)
  - BLOOD CREATINE PHOSPHOKINASE INCREASED [None]
  - FATIGUE [None]
  - MYOPATHY [None]
  - VOMITING [None]
